FAERS Safety Report 11664227 (Version 3)
Quarter: 2015Q4

REPORT INFORMATION
  Report Type: Spontaneous
  Country: US (occurrence: US)
  Receive Date: 20151027
  Receipt Date: 20151116
  Transmission Date: 20160304
  Serious: Yes (Hospitalization)
  Sender: FDA-Public Use
  Company Number: US-XENOPORT, INC.-2015US009423

PATIENT
  Sex: Female

DRUGS (1)
  1. HORIZANT [Suspect]
     Active Substance: GABAPENTIN ENACARBIL
     Indication: NEUROPATHY PERIPHERAL
     Dosage: 600 MG, NIGHTLY
     Route: 048
     Dates: start: 201410

REACTIONS (10)
  - Cellulitis [Recovered/Resolved]
  - Mental impairment [Recovered/Resolved]
  - Hypersomnia [Recovered/Resolved]
  - Muscle atrophy [Recovered/Resolved]
  - Hypoaesthesia [Recovered/Resolved]
  - Peripheral swelling [Recovered/Resolved]
  - Asthenia [Recovered/Resolved]
  - Fungal infection [Recovered/Resolved]
  - Vertigo [Recovered/Resolved]
  - Off label use [Unknown]

NARRATIVE: CASE EVENT DATE: 201411
